FAERS Safety Report 8220116-1 (Version None)
Quarter: 2012Q1

REPORT INFORMATION
  Report Type: 
  Country: None (occurrence: None)
  Receive Date: 20120320
  Receipt Date: 20120131
  Transmission Date: 20120608
  Serious: No
  Sender: FDA-Public Use
  Company Number: US-BIOGENIDEC-2012BI003835

PATIENT
  Sex: Female

DRUGS (6)
  1. ENPRESSE [Concomitant]
     Indication: CONTRACEPTION
     Dates: start: 20111201
  2. AVONEX [Suspect]
     Route: 030
     Dates: start: 20030828
  3. AVONEX [Suspect]
     Route: 030
     Dates: start: 20030828
  4. IBUPROFEN [Concomitant]
     Indication: PREMEDICATION
     Route: 048
  5. TRIVORA-21 [Concomitant]
     Indication: CONTRACEPTION
     Dates: end: 20111201
  6. AVONEX [Suspect]
     Indication: MULTIPLE SCLEROSIS
     Route: 030
     Dates: start: 20030828

REACTIONS (6)
  - INJECTION SITE PAIN [None]
  - CARPAL TUNNEL SYNDROME [None]
  - PAIN IN EXTREMITY [None]
  - FATIGUE [None]
  - PARAESTHESIA [None]
  - MUSCLE TIGHTNESS [None]
